FAERS Safety Report 21044318 (Version 1)
Quarter: 2022Q3

REPORT INFORMATION
  Report Type: Spontaneous
  Country: US (occurrence: None)
  Receive Date: 20220704
  Receipt Date: 20220704
  Transmission Date: 20221026
  Serious: No
  Sender: FDA-Public Use
  Company Number: None

PATIENT
  Sex: 0

DRUGS (1)
  1. LOSARTAN [Suspect]
     Active Substance: LOSARTAN
     Indication: Hypertension
     Route: 048
     Dates: start: 20220621

REACTIONS (10)
  - Back pain [None]
  - Product taste abnormal [None]
  - Gastrointestinal disorder [None]
  - Headache [None]
  - Flatulence [None]
  - Nausea [None]
  - Insomnia [None]
  - Tinnitus [None]
  - Anxiety [None]
  - Palpitations [None]

NARRATIVE: CASE EVENT DATE: 20220629
